FAERS Safety Report 6569869-9 (Version None)
Quarter: 2010Q1

REPORT INFORMATION
  Report Type: 
  Country: None (occurrence: None)
  Receive Date: 20100204
  Receipt Date: 20100125
  Transmission Date: 20100710
  Serious: Yes (Other)
  Sender: FDA-Public Use
  Company Number: PHHY2010AU04658

PATIENT
  Sex: Male

DRUGS (3)
  1. ACLASTA [Suspect]
     Indication: OSTEOPOROSIS
     Dosage: UNK
     Route: 042
     Dates: start: 20100107
  2. VITAMIN D [Concomitant]
  3. CALCIUM [Concomitant]

REACTIONS (3)
  - FAECES DISCOLOURED [None]
  - RENAL IMPAIRMENT [None]
  - URINARY TRACT INFECTION [None]
